FAERS Safety Report 5238031-4 (Version None)
Quarter: 2007Q1

REPORT INFORMATION
  Report Type: 
  Country: None (occurrence: None)
  Receive Date: 20070214
  Receipt Date: 20070202
  Transmission Date: 20070707
  Serious: Yes (Other)
  Sender: FDA-Public Use
  Company Number: US-PFIZER INC-2007009713

PATIENT
  Sex: Female
  Weight: 57.2 kg

DRUGS (5)
  1. AROMASIN [Suspect]
     Indication: BREAST CANCER
     Route: 048
  2. LIPITOR [Concomitant]
     Route: 048
  3. LOTENSIN [Concomitant]
     Route: 048
  4. NITROGLYCERIN [Concomitant]
     Route: 061
  5. NITROGLYCERIN [Concomitant]
     Route: 060

REACTIONS (2)
  - PARKINSON'S DISEASE [None]
  - TREMOR [None]
